FAERS Safety Report 13681214 (Version 2)
Quarter: 2018Q4

REPORT INFORMATION
  Report Type: Spontaneous
  Country: ES (occurrence: ES)
  Receive Date: 20170623
  Receipt Date: 20181224
  Transmission Date: 20190204
  Serious: Yes (Other)
  Sender: FDA-Public Use
  Company Number: ES-AUROBINDO-AUR-APL-2017-10974

PATIENT
  Age: 18 Year
  Sex: Female

DRUGS (3)
  1. PARACETAMOL [Suspect]
     Active Substance: ACETAMINOPHEN
     Indication: NASOPHARYNGITIS
     Dosage: 1 G, UNK
     Route: 065
     Dates: start: 2009
  2. IBUPROFEN. [Suspect]
     Active Substance: IBUPROFEN
     Indication: NASOPHARYNGITIS
     Dosage: 600 MILLIGRAM, ONCE A DAY
     Route: 065
     Dates: start: 2009
  3. IBUPROFEN. [Suspect]
     Active Substance: IBUPROFEN
     Dosage: DOSAGE FORM: UNSPECIFIED
     Route: 048
     Dates: start: 2009

REACTIONS (7)
  - Asthma [Recovering/Resolving]
  - Headache [Recovering/Resolving]
  - Rhinitis [Recovering/Resolving]
  - Nasopharyngitis [Recovered/Resolved]
  - Respiratory disorder [Recovered/Resolved]
  - Bronchospasm [Recovered/Resolved]
  - Nasal polyps [Recovered/Resolved]

NARRATIVE: CASE EVENT DATE: 2009
